FAERS Safety Report 24333078 (Version 3)
Quarter: 2025Q1

REPORT INFORMATION
  Report Type: Report from Study
  Country: US (occurrence: US)
  Receive Date: 20240918
  Receipt Date: 20250320
  Transmission Date: 20250409
  Serious: Yes (Hospitalization, Other)
  Sender: TAKEDA
  Company Number: US-TAKEDA-2024TUS033095

PATIENT
  Age: 64 Year
  Sex: Female

DRUGS (6)
  1. TEDUGLUTIDE [Suspect]
     Active Substance: TEDUGLUTIDE
     Indication: Short-bowel syndrome
     Dosage: 3.12 MILLIGRAM, QD
     Dates: start: 20240319
  2. TEDUGLUTIDE [Suspect]
     Active Substance: TEDUGLUTIDE
     Dosage: 3.1 MILLIGRAM, QD
     Dates: start: 20240325
  3. TEDUGLUTIDE [Suspect]
     Active Substance: TEDUGLUTIDE
     Dosage: 3.12 MILLIGRAM, QD
     Dates: end: 20240628
  4. TEDUGLUTIDE [Suspect]
     Active Substance: TEDUGLUTIDE
     Dosage: 3.12 MILLIGRAM, QD
     Dates: start: 20240916
  5. TEDUGLUTIDE [Suspect]
     Active Substance: TEDUGLUTIDE
     Dosage: 3.12 MILLIGRAM, QD
  6. TEDUGLUTIDE [Suspect]
     Active Substance: TEDUGLUTIDE
     Dosage: 1.5 MILLIGRAM, QD

REACTIONS (6)
  - Haematological infection [Recovered/Resolved]
  - Urinary tract infection [Recovering/Resolving]
  - Abdominal pain [Not Recovered/Not Resolved]
  - Vascular device infection [Recovering/Resolving]
  - Vomiting [Not Recovered/Not Resolved]
  - Nausea [Not Recovered/Not Resolved]

NARRATIVE: CASE EVENT DATE: 20240629
